FAERS Safety Report 10098377 (Version 4)
Quarter: 2014Q2

REPORT INFORMATION
  Report Type: Spontaneous
  Country: US (occurrence: US)
  Receive Date: 20140423
  Receipt Date: 20140619
  Transmission Date: 20141212
  Serious: Yes (Hospitalization)
  Sender: FDA-Public Use
  Company Number: US-PFIZER INC-2014108616

PATIENT
  Age: 79 Year
  Sex: Male

DRUGS (15)
  1. INLYTA [Suspect]
     Indication: CLEAR CELL RENAL CELL CARCINOMA
     Dosage: 5 MG, 2X/DAY
     Route: 048
     Dates: start: 20140310
  2. INLYTA [Suspect]
     Dosage: 5 MG, 2X/DAY
     Route: 048
     Dates: start: 20140522, end: 20140527
  3. ASPIRIN [Concomitant]
     Dosage: UNK
  4. AVASTIN [Concomitant]
     Dosage: UNK
  5. GLIMEPIRIDE [Concomitant]
     Dosage: UNK
  6. METFORMIN HYDROCHLORIDE [Concomitant]
     Dosage: UNK
  7. METOPROLOL TARTRATE [Concomitant]
     Dosage: UNK
  8. LOSARTAN POTASSIUM [Concomitant]
     Dosage: UNK
  9. LEUKINE [Concomitant]
     Dosage: UNK
  10. HYDROCHOROTHIAZIDE [Concomitant]
     Dosage: UNK
  11. GEMZAR [Concomitant]
     Indication: RENAL CELL CARCINOMA
     Dosage: 773 MG, EVERY 2 WEEKS
     Dates: start: 20130715, end: 20140522
  12. IRINOTECAN [Concomitant]
     Indication: RENAL CELL CARCINOMA
     Dosage: 155 MG,  EVERY 2 WEEKS
     Dates: start: 20140522, end: 20140522
  13. NAVELBINE [Concomitant]
     Indication: RENAL CELL CARCINOMA
     Dosage: 19 MG, EVERY 2 WEEKS
     Dates: start: 20130715, end: 20140522
  14. 5-FLUOROURACIL [Concomitant]
     Indication: RENAL CELL CARCINOMA
     Dosage: 2320 MG, EVERY 2 WEEKS
     Dates: start: 20130715, end: 20140502
  15. CARBOPLATIN [Concomitant]
     Indication: RENAL CELL CARCINOMA
     Dosage: 129 MG, EVERY 2 WEEKS
     Dates: start: 20130715, end: 20140502

REACTIONS (9)
  - Pancytopenia [Recovering/Resolving]
  - Rash [Unknown]
  - Hyperglycaemia [Unknown]
  - Lymphadenopathy [Unknown]
  - Nausea [Unknown]
  - Vomiting [Unknown]
  - Diarrhoea [Recovering/Resolving]
  - Decreased appetite [Unknown]
  - Fatigue [Recovering/Resolving]
